FAERS Safety Report 13305301 (Version 1)
Quarter: 2017Q1

REPORT INFORMATION
  Report Type: Spontaneous
  Country: US (occurrence: US)
  Receive Date: 20170307
  Receipt Date: 20170307
  Transmission Date: 20170428
  Serious: Yes (Other)
  Sender: FDA-Public Use
  Company Number: None

PATIENT
  Age: 85 Year
  Sex: Female

DRUGS (1)
  1. REVLIMID [Suspect]
     Active Substance: LENALIDOMIDE
     Indication: PLASMA CELL MYELOMA
     Route: 048
     Dates: start: 20170124

REACTIONS (5)
  - Presyncope [None]
  - Flushing [None]
  - Dizziness [None]
  - Refusal of treatment by patient [None]
  - Defaecation urgency [None]

NARRATIVE: CASE EVENT DATE: 20170128
